FAERS Safety Report 25932739 (Version 1)
Quarter: 2025Q4

REPORT INFORMATION
  Report Type: Spontaneous
  Country: US (occurrence: US)
  Receive Date: 20251017
  Receipt Date: 20251017
  Transmission Date: 20260117
  Serious: Yes (Hospitalization)
  Sender: SANOFI AVENTIS
  Company Number: US-SA-2025SA308059

PATIENT
  Age: 72 Year
  Sex: Female

DRUGS (7)
  1. DUPIXENT [Suspect]
     Active Substance: DUPILUMAB
     Indication: Essential hypertension
     Dosage: 300 MG, QOW
     Route: 058
  2. BUMETANIDE [Concomitant]
     Active Substance: BUMETANIDE
  3. METOLAZONE [Concomitant]
     Active Substance: METOLAZONE
  4. NOVOLOG [Concomitant]
     Active Substance: INSULIN ASPART
     Dosage: SOL 100 UNIT
  5. POTASSIUM CHLORIDE [Concomitant]
     Active Substance: POTASSIUM CHLORIDE
     Dosage: TBC 10 MEQ
  6. QUETIAPINE [Concomitant]
     Active Substance: QUETIAPINE
  7. TOUJEO MAX [Concomitant]
     Active Substance: INSULIN GLARGINE
     Dosage: SOP 300 UNIT

REACTIONS (3)
  - Blood pressure abnormal [Unknown]
  - Oxygen saturation abnormal [Unknown]
  - Product use in unapproved indication [Unknown]
